FAERS Safety Report 25924432 (Version 1)
Quarter: 2025Q4

REPORT INFORMATION
  Report Type: Report from Study
  Country: EU (occurrence: EU)
  Receive Date: 20251015
  Receipt Date: 20251015
  Transmission Date: 20260117
  Serious: Yes (Death, Hospitalization, Other)
  Sender: ROCHE
  Company Number: EU-CHEPLA-2025010633

PATIENT
  Age: 7 Decade

DRUGS (13)
  1. GANCICLOVIR [Suspect]
     Active Substance: GANCICLOVIR
     Indication: Cytomegalovirus infection reactivation
     Dosage: DAY +52 TO?52 TO 69  TWICE A DAY
     Route: 065
  2. GANCICLOVIR [Suspect]
     Active Substance: GANCICLOVIR
     Dosage: 261 TO 280
     Route: 065
  3. VALGANCICLOVIR [Suspect]
     Active Substance: VALGANCICLOVIR
     Indication: Cytomegalovirus colitis
     Dosage: 165 TO 261;  TWICE A DAY
     Route: 065
  4. MYCOPHENOLATE MOFETIL [Suspect]
     Active Substance: MYCOPHENOLATE MOFETIL
     Indication: Prophylaxis against graft versus host disease
     Route: 048
  5. MYCOPHENOLATE MOFETIL [Suspect]
     Active Substance: MYCOPHENOLATE MOFETIL
     Dosage: WAS INCREASED TO 2 MG/KG/DAY
     Route: 042
  6. FOSCARNET [Suspect]
     Active Substance: FOSCARNET
     Indication: Prophylaxis against graft versus host disease
     Dosage: 98 TO 157;  TWICE A DAY
     Route: 065
  7. FLUDARABINE [Suspect]
     Active Substance: FLUDARABINE PHOSPHATE
     Indication: Prophylaxis against graft versus host disease
     Dosage: 6 TO 2 DAYS BEFORE HSCT (DAY -6 TO DAY -2)
     Route: 065
  8. BUSULFAN [Suspect]
     Active Substance: BUSULFAN
     Indication: Prophylaxis against graft versus host disease
     Dosage: DAY 5 TO DAY 3
     Route: 065
  9. GRAFALON [Suspect]
     Active Substance: LAPINE T-LYMPHOCYTE IMMUNE GLOBULIN
     Indication: Prophylaxis against graft versus host disease
     Dosage: DAY -2 TO DAY -1
     Route: 065
  10. GRAFALON [Suspect]
     Active Substance: LAPINE T-LYMPHOCYTE IMMUNE GLOBULIN
     Indication: Allogenic stem cell transplantation
  11. TACROLIMUS [Suspect]
     Active Substance: TACROLIMUS
     Indication: Prophylaxis against graft versus host disease
     Route: 065
  12. METHYLPREDNISOLONE [Suspect]
     Active Substance: METHYLPREDNISOLONE
     Indication: Prophylaxis against graft versus host disease
     Dosage: DAY 43
     Route: 048
  13. METHYLPREDNISOLONE [Suspect]
     Active Substance: METHYLPREDNISOLONE
     Dosage: INCREASED TO 2 MG/ KG/DAY
     Route: 042

REACTIONS (12)
  - Pulmonary tuberculosis [Fatal]
  - Bacterial infection [Unknown]
  - Fungal infection [Unknown]
  - Acute respiratory distress syndrome [Unknown]
  - Bacteraemia [Unknown]
  - Beta haemolytic streptococcal infection [Unknown]
  - Cytomegalovirus infection reactivation [Unknown]
  - Epstein-Barr virus infection [Unknown]
  - Viral infection [Unknown]
  - Drug resistance [Unknown]
  - Off label use [Unknown]
  - Graft versus host disease [Unknown]
